FAERS Safety Report 11289881 (Version 1)
Quarter: 2015Q3

REPORT INFORMATION
  Report Type: Spontaneous
  Country: IT (occurrence: IT)
  Receive Date: 20150721
  Receipt Date: 20150721
  Transmission Date: 20151125
  Serious: Yes (Hospitalization)
  Sender: FDA-Public Use
  Company Number: IT-ROXANE LABORATORIES, INC.-2015-RO-01183RO

PATIENT
  Age: 78 Year
  Sex: Male

DRUGS (1)
  1. LEVETIRACETAM. [Suspect]
     Active Substance: LEVETIRACETAM
     Indication: EPILEPSY
     Dosage: 1500 MG
     Route: 048

REACTIONS (5)
  - Asthenia [Unknown]
  - Weight decreased [Unknown]
  - Nausea [Unknown]
  - Drug level above therapeutic [Recovered/Resolved]
  - Decreased appetite [Recovered/Resolved]
